FAERS Safety Report 15048161 (Version 1)
Quarter: 2018Q2

REPORT INFORMATION
  Report Type: Other
  Country: US (occurrence: US)
  Receive Date: 20180622
  Receipt Date: 20180622
  Transmission Date: 20180711
  Serious: Yes (Other)
  Sender: FDA-Public Use
  Company Number: US-DENTSPLY-2018SCDP000222

PATIENT
  Age: 59 Year
  Sex: Female

DRUGS (2)
  1. LIDOCAINE. [Suspect]
     Active Substance: LIDOCAINE
     Indication: PRODUCT USED FOR UNKNOWN INDICATION
     Dosage: FIVE 50 MG BOLUSES EVERY 5 MIN WITH BACKGROUND CONTINUOUS INFUSION RATE OF 50 MG OVER 45 MIN
  2. LIDOCAINE. [Suspect]
     Active Substance: LIDOCAINE
     Dosage: 150 MG, INFUSION, 3MG/KG

REACTIONS (1)
  - Hypertension [Recovered/Resolved]
